FAERS Safety Report 6273710-1 (Version None)
Quarter: 2009Q3

REPORT INFORMATION
  Report Type: 
  Country: None (occurrence: None)
  Receive Date: 20090720
  Receipt Date: 20090709
  Transmission Date: 20100115
  Serious: Yes (Other)
  Sender: FDA-Public Use
  Company Number: US-AMGEN-STX355210

PATIENT
  Sex: Male

DRUGS (2)
  1. VECTIBIX [Suspect]
     Indication: NEOPLASM MALIGNANT
     Dates: start: 20090420
  2. UNSPECIFIED THYROID MEDICATION [Concomitant]

REACTIONS (2)
  - ACNE [None]
  - ASCITES [None]
